FAERS Safety Report 11686547 (Version 3)
Quarter: 2015Q4

REPORT INFORMATION
  Report Type: Spontaneous
  Country: JP (occurrence: JP)
  Receive Date: 20151030
  Receipt Date: 20151116
  Transmission Date: 20160304
  Serious: Yes (Hospitalization, Other)
  Sender: FDA-Public Use
  Company Number: JP-BAYER-2012-059642

PATIENT
  Age: 71 Year
  Sex: Male
  Weight: 49.85 kg

DRUGS (14)
  1. NEXAVAR [Suspect]
     Active Substance: SORAFENIB
     Indication: HEPATOCELLULAR CARCINOMA
     Dosage: 600 MG/DAY
     Dates: start: 20120822, end: 20130326
  2. NEXAVAR [Suspect]
     Active Substance: SORAFENIB
     Indication: HEPATOCELLULAR CARCINOMA
     Dosage: 400 MG, QD
     Route: 048
     Dates: start: 20120528, end: 20120821
  3. ARGAMATE [Concomitant]
     Active Substance: CALCIUM POLYSTYRENE SULFONATE
     Indication: HYPERKALAEMIA
     Dosage: DAILY DOSE 50 G
     Route: 048
     Dates: start: 20120611
  4. NEXAVAR [Suspect]
     Active Substance: SORAFENIB
     Indication: HEPATOCELLULAR CARCINOMA
     Dosage: 800 MG/DAY
     Dates: start: 20130327, end: 20130417
  5. NEXAVAR [Suspect]
     Active Substance: SORAFENIB
     Indication: HEPATOCELLULAR CARCINOMA
     Dosage: 400 MG, QD
     Route: 048
     Dates: start: 20130507, end: 20130509
  6. RENIVACE [Concomitant]
     Active Substance: ENALAPRIL
     Indication: HYPERTENSION
     Dosage: DAILY DOSE 10 MG
     Route: 048
     Dates: start: 20120727
  7. MAGMITT [Concomitant]
     Active Substance: MAGNESIUM OXIDE
     Indication: CONSTIPATION
     Dosage: DAILY DOSE 990 MG
     Route: 048
  8. EURODIN [Concomitant]
     Active Substance: ESTAZOLAM
     Indication: INSOMNIA
     Dosage: DAILY DOSE 2 MG
     Route: 048
  9. NEXAVAR [Suspect]
     Active Substance: SORAFENIB
     Indication: HEPATOCELLULAR CARCINOMA
     Dosage: 400 MG, QD
     Route: 048
     Dates: start: 20140926, end: 20150119
  10. NEXAVAR [Suspect]
     Active Substance: SORAFENIB
     Indication: HEPATOCELLULAR CARCINOMA
     Dosage: 800 MG, QD
     Route: 048
     Dates: start: 20130510, end: 20131030
  11. VILDAGLIPTIN [Concomitant]
     Active Substance: VILDAGLIPTIN
     Indication: DIABETES MELLITUS
     Dosage: DAILY DOSE 50 MG
     Route: 048
  12. TENORMIN [Concomitant]
     Active Substance: ATENOLOL
     Indication: HYPERTENSION
     Dosage: DAILY DOSE 50 MG
     Route: 048
     Dates: start: 20120601
  13. SALOBEL [Concomitant]
     Active Substance: ALLOPURINOL
     Indication: HYPERURICAEMIA
     Dosage: DAILY DOSE 200 MG
     Route: 048
     Dates: start: 20120604
  14. REZALTAS [Concomitant]
     Active Substance: AZELNIDIPINE\OLMESARTAN MEDOXOMIL
     Indication: HYPERTENSION
     Dosage: DAILY DOSE 1 DF
     Route: 048
     Dates: start: 20120704

REACTIONS (15)
  - Genital erythema [None]
  - Effusion [Recovering/Resolving]
  - Dermatitis [None]
  - Rash erythematous [None]
  - Pustular psoriasis [Recovered/Resolved]
  - Skin exfoliation [None]
  - Rash [None]
  - Rash pustular [None]
  - Rash [Recovered/Resolved]
  - Oedema peripheral [Recovered/Resolved]
  - Blood potassium increased [Not Recovered/Not Resolved]
  - Rash pustular [None]
  - Rash erythematous [None]
  - Erythema [None]
  - Metastases to lymph nodes [Not Recovered/Not Resolved]

NARRATIVE: CASE EVENT DATE: 20120611
